FAERS Safety Report 9150498 (Version 2)
Quarter: 2013Q1

REPORT INFORMATION
  Report Type: Spontaneous
  Country: FR (occurrence: FR)
  Receive Date: 20130308
  Receipt Date: 20130328
  Transmission Date: 20140127
  Serious: Yes (Hospitalization, Other)
  Sender: FDA-Public Use
  Company Number: FR-ASTRAZENECA-2013SE14389

PATIENT
  Age: 25975 Day
  Sex: Male

DRUGS (11)
  1. CAPRELSA [Suspect]
     Indication: THYROID CANCER
     Route: 048
     Dates: start: 20120621, end: 20120729
  2. CAPRELSA [Suspect]
     Indication: METASTASES TO LUNG
     Route: 048
     Dates: start: 20120621, end: 20120729
  3. CAPRELSA [Suspect]
     Indication: METASTASES TO LIVER
     Route: 048
     Dates: start: 20120621, end: 20120729
  4. CAPRELSA [Suspect]
     Indication: THYROID CANCER
     Route: 048
     Dates: start: 20120914, end: 20121214
  5. CAPRELSA [Suspect]
     Indication: METASTASES TO LUNG
     Route: 048
     Dates: start: 20120914, end: 20121214
  6. CAPRELSA [Suspect]
     Indication: METASTASES TO LIVER
     Route: 048
     Dates: start: 20120914, end: 20121214
  7. LEVOTHYROX [Concomitant]
  8. DIFFU-K [Concomitant]
  9. FLAGYL [Concomitant]
  10. ACTONEL [Concomitant]
  11. BION 3 [Concomitant]

REACTIONS (2)
  - Crohn^s disease [Recovering/Resolving]
  - Photosensitivity reaction [Recovered/Resolved]
